FAERS Safety Report 5064614-0 (Version None)
Quarter: 2006Q3

REPORT INFORMATION
  Report Type: 
  Country: None (occurrence: None)
  Receive Date: 20060706
  Receipt Date: 20060414
  Transmission Date: 20061208
  Serious: No
  Sender: FDA-Public Use
  Company Number: 200612367BWH

PATIENT
  Sex: Male

DRUGS (4)
  1. LEVITRA [Suspect]
     Indication: ERECTILE DYSFUNCTION
     Dosage: 10 MG, QD, ORAL
     Route: 048
     Dates: start: 20040101
  2. NORVASC [Concomitant]
  3. LOVASTATIN [Concomitant]
  4. METHOTREXATE [Concomitant]

REACTIONS (1)
  - ERECTILE DYSFUNCTION [None]
